FAERS Safety Report 5825055-9 (Version None)
Quarter: 2008Q3

REPORT INFORMATION
  Report Type: 
  Country: None (occurrence: None)
  Receive Date: 20080729
  Receipt Date: 20080725
  Transmission Date: 20090109
  Serious: Yes (Disabling, Other)
  Sender: FDA-Public Use
  Company Number: GB-BRISTOL-MYERS SQUIBB COMPANY-14278113

PATIENT
  Age: 24 Year
  Sex: Female
  Weight: 48 kg

DRUGS (3)
  1. ARIPIPRAZOLE [Suspect]
     Indication: PSYCHOTIC DISORDER
     Route: 048
     Dates: start: 20080301, end: 20080627
  2. ACETAMINOPHEN W/ CODEINE [Concomitant]
     Indication: PAIN IN EXTREMITY
     Dosage: 1/1 AS NEEDED
     Route: 048
     Dates: start: 20050101
  3. DIAZEPAM [Concomitant]
     Indication: ANXIETY
     Dosage: 1/1 AS NECESSARY
     Route: 048
     Dates: start: 20070101

REACTIONS (3)
  - EYE PAIN [None]
  - FORMICATION [None]
  - HEADACHE [None]
